FAERS Safety Report 20530128 (Version 3)
Quarter: 2022Q2

REPORT INFORMATION
  Report Type: Spontaneous
  Country: DE (occurrence: DE)
  Receive Date: 20220301
  Receipt Date: 20220512
  Transmission Date: 20220720
  Serious: Yes (Hospitalization)
  Sender: FDA-Public Use
  Company Number: DE-DAIICHI SANKYO EUROPE GMBH-DSE-2022-106190

PATIENT
  Age: 77 Year
  Sex: Female
  Weight: 80 kg

DRUGS (8)
  1. BEMPEDOIC ACID [Suspect]
     Active Substance: BEMPEDOIC ACID
     Indication: Product used for unknown indication
     Dosage: 180 MG, QD
     Route: 065
     Dates: start: 202106, end: 20220118
  2. BEMPEDOIC ACID [Suspect]
     Active Substance: BEMPEDOIC ACID
     Dosage: 90 MG, QD
     Route: 065
     Dates: start: 20220119, end: 20220202
  3. LEVOTHYROXINE [Concomitant]
     Active Substance: LEVOTHYROXINE
     Indication: Thyroid nodule removal
     Dosage: 75 UG, QD
     Route: 065
  4. ISDN [Concomitant]
     Indication: Angina pectoris
     Dosage: 20 MG, QD
     Route: 065
  5. CHOLECALCIFEROL [Concomitant]
     Active Substance: CHOLECALCIFEROL
     Indication: Osteoporosis
     Dosage: 2000 UG, QD
     Route: 065
  6. LISINOPRIL [Concomitant]
     Active Substance: LISINOPRIL
     Indication: Hypertension
     Dosage: 20 MG
     Route: 065
  7. VITAMIN B12 [Concomitant]
     Active Substance: CYANOCOBALAMIN
     Indication: Prophylaxis
     Dosage: 1 DF, QD
     Route: 065
  8. PANTOPRAZOLE [Concomitant]
     Active Substance: PANTOPRAZOLE
     Indication: Abdominal pain upper
     Dosage: 20 MG, QD
     Route: 065
     Dates: start: 202106

REACTIONS (8)
  - Fall [Recovered/Resolved]
  - Spinal disorder [Recovered/Resolved]
  - Injury [Recovered/Resolved]
  - Tension headache [Recovered/Resolved]
  - Myalgia [Recovered/Resolved]
  - Wrong technique in product usage process [Recovered/Resolved]
  - Haemoglobin decreased [Recovered/Resolved]
  - Pain in extremity [Recovered/Resolved]

NARRATIVE: CASE EVENT DATE: 20210701
